FAERS Safety Report 7319320-6 (Version None)
Quarter: 2011Q1

REPORT INFORMATION
  Report Type: 
  Country: None (occurrence: None)
  Receive Date: 20110228
  Receipt Date: 20100129
  Transmission Date: 20110831
  Serious: No
  Sender: FDA-Public Use
  Company Number: A0842126A

PATIENT
  Age: 44 Year
  Sex: Female

DRUGS (4)
  1. VIMPAT [Suspect]
     Dates: start: 20090101
  2. LAMICTAL [Suspect]
     Indication: EPILEPSY
     Dosage: 225MG THREE TIMES PER DAY
     Route: 048
     Dates: start: 20080101
  3. TOPAMAX [Concomitant]
  4. VIMPAT [Concomitant]

REACTIONS (2)
  - DRUG INEFFECTIVE [None]
  - ALOPECIA [None]
